FAERS Safety Report 16819562 (Version 8)
Quarter: 2019Q3

REPORT INFORMATION
  Report Type: Report from Study
  Country: FR (occurrence: FR)
  Receive Date: 20190917
  Receipt Date: 20190924
  Transmission Date: 20191005
  Serious: Yes (Hospitalization)
  Sender: FDA-Public Use
  Company Number: FR-EISAI MEDICAL RESEARCH-EC-2019-062248

PATIENT
  Age: 77 Year
  Sex: Female
  Weight: 52.5 kg

DRUGS (20)
  1. HUMALOG [Concomitant]
     Active Substance: INSULIN LISPRO
  2. LENVATINIB [Suspect]
     Active Substance: LENVATINIB
     Indication: MALIGNANT MELANOMA STAGE III
     Route: 048
     Dates: start: 20190806, end: 20190806
  3. LANTUS [Concomitant]
     Active Substance: INSULIN GLARGINE
  4. LENVATINIB [Suspect]
     Active Substance: LENVATINIB
     Indication: MALIGNANT MELANOMA STAGE IV
     Route: 048
     Dates: start: 20190909, end: 20190909
  5. XARELTO [Concomitant]
     Active Substance: RIVAROXABAN
  6. ESCITALOPRAM [Concomitant]
     Active Substance: ESCITALOPRAM OXALATE
  7. HUMALOG [Concomitant]
     Active Substance: INSULIN LISPRO
  8. LANTUS [Concomitant]
     Active Substance: INSULIN GLARGINE
  9. PEMBROLIZUMAB. [Suspect]
     Active Substance: PEMBROLIZUMAB
     Indication: MALIGNANT MELANOMA STAGE III
     Route: 041
     Dates: start: 20190806, end: 20190806
  10. ZYMAD [Concomitant]
     Active Substance: CHOLECALCIFEROL
  11. XARELTO [Concomitant]
     Active Substance: RIVAROXABAN
  12. LANTUS [Concomitant]
     Active Substance: INSULIN GLARGINE
  13. PEMBROLIZUMAB. [Suspect]
     Active Substance: PEMBROLIZUMAB
     Indication: MALIGNANT MELANOMA STAGE IV
     Dosage: UNKNOWN
     Route: 041
     Dates: start: 20190909, end: 20190909
  14. QUINAPRIL HYDROCHLORIDE. [Concomitant]
     Active Substance: QUINAPRIL HYDROCHLORIDE
  15. ESCITALOPRAM [Concomitant]
     Active Substance: ESCITALOPRAM OXALATE
  16. ZYMAD [Concomitant]
     Active Substance: CHOLECALCIFEROL
  17. HUMALOG [Concomitant]
     Active Substance: INSULIN LISPRO
  18. XARELTO [Concomitant]
     Active Substance: RIVAROXABAN
  19. ESCITALOPRAM [Concomitant]
     Active Substance: ESCITALOPRAM OXALATE
  20. ZYMAD [Concomitant]
     Active Substance: CHOLECALCIFEROL

REACTIONS (1)
  - Pyrexia [Unknown]

NARRATIVE: CASE EVENT DATE: 20190909
